FAERS Safety Report 25395162 (Version 1)
Quarter: 2025Q2

REPORT INFORMATION
  Report Type: Spontaneous
  Country: SE (occurrence: SE)
  Receive Date: 20250604
  Receipt Date: 20250604
  Transmission Date: 20250716
  Serious: Yes (Hospitalization)
  Sender: MYLAN
  Company Number: None

PATIENT
  Age: 9 Day
  Sex: Female
  Weight: 3 kg

DRUGS (1)
  1. ERYTHROMYCIN [Suspect]
     Active Substance: ERYTHROMYCIN
     Indication: Antibiotic prophylaxis
     Dosage: 12.5 MILLIGRAM/KILOGRAM, Q4D (12,5MG/KG X 4 FOR 7 DAYS )
     Dates: start: 20240920, end: 20240922

REACTIONS (1)
  - Pyloric stenosis [Unknown]

NARRATIVE: CASE EVENT DATE: 20240921
